FAERS Safety Report 5425091-0 (Version None)
Quarter: 2007Q3

REPORT INFORMATION
  Report Type: 
  Country: None (occurrence: None)
  Receive Date: 20070824
  Receipt Date: 20070814
  Transmission Date: 20080115
  Serious: Yes (Hospitalization, Other)
  Sender: FDA-Public Use
  Company Number: JP-JNJFOC-20070800923

PATIENT
  Sex: Female
  Weight: 31 kg

DRUGS (7)
  1. ITRIZOLE [Suspect]
     Indication: PULMONARY MYCOSIS
     Route: 041
  2. ITRIZOLE [Suspect]
     Route: 048
  3. ITRACONAZOLE [Concomitant]
     Indication: BRONCHOPULMONARY ASPERGILLOSIS ALLERGIC
     Route: 048
  4. RIZE [Concomitant]
     Indication: ANXIETY DISORDER
     Route: 048
  5. CLARITHROMYCIN [Concomitant]
     Indication: BRONCHITIS CHRONIC
     Route: 048
  6. PREDNISOLONE [Concomitant]
     Indication: BRONCHOPULMONARY ASPERGILLOSIS ALLERGIC
     Route: 048
  7. MAGLAX [Concomitant]
     Indication: CONSTIPATION
     Route: 048

REACTIONS (3)
  - BRONCHOPULMONARY ASPERGILLOSIS ALLERGIC [None]
  - EOSINOPHILIA [None]
  - INJECTION SITE PHLEBITIS [None]
